FAERS Safety Report 9406821 (Version 1)
Quarter: 2013Q3

REPORT INFORMATION
  Report Type: Spontaneous
  Country: BR (occurrence: BR)
  Receive Date: 20130718
  Receipt Date: 20130718
  Transmission Date: 20140515
  Serious: Yes (Other)
  Sender: FDA-Public Use
  Company Number: PHHY2013BR075500

PATIENT
  Age: 11 Year
  Sex: Male

DRUGS (2)
  1. RITALIN LA [Suspect]
     Indication: AGITATION
     Dosage: 20 MG, QD (1 CAPSULE IN THE MORNING AFTER BREAKFAST ONCE A DAY)
     Route: 048
  2. RITALIN LA [Suspect]
     Dosage: 30 MG, QD (1 CASPULE IN THE MORNING DAILY)
     Route: 048

REACTIONS (4)
  - Drug dependence [Unknown]
  - Agitation [Unknown]
  - Anxiety [Unknown]
  - Disturbance in attention [Unknown]
